FAERS Safety Report 5936041-2 (Version None)
Quarter: 2008Q4

REPORT INFORMATION
  Report Type: 
  Country: None (occurrence: None)
  Receive Date: 20081030
  Receipt Date: 20080904
  Transmission Date: 20090506
  Serious: Yes (Death)
  Sender: FDA-Public Use
  Company Number: DE-PFIZER INC-2008088573

PATIENT
  Sex: Male

DRUGS (9)
  1. DOXYCYCLINE [Suspect]
  2. DICLOFENAC [Suspect]
  3. CIPRAMIL [Suspect]
  4. CORDAREX [Suspect]
  5. RISPERDAL [Suspect]
  6. TORSEMIDE [Suspect]
  7. VIANI [Suspect]
  8. THEOPHYLLINE [Suspect]
  9. NEUROCIL [Suspect]

REACTIONS (2)
  - LEFT VENTRICULAR FAILURE [None]
  - SMALL INTESTINAL PERFORATION [None]
